FAERS Safety Report 4786107-8 (Version None)
Quarter: 2005Q3

REPORT INFORMATION
  Report Type: 
  Country: None (occurrence: None)
  Receive Date: 20050930
  Receipt Date: 20050921
  Transmission Date: 20060218
  Serious: No
  Sender: FDA-Public Use
  Company Number: 217786

PATIENT
  Age: 58 Year
  Sex: Male

DRUGS (1)
  1. AVASTIN [Suspect]
     Indication: COLON CANCER

REACTIONS (1)
  - RECTAL ULCER [None]
